FAERS Safety Report 16843617 (Version 1)
Quarter: 2019Q3

REPORT INFORMATION
  Report Type: Spontaneous
  Country: AT (occurrence: AT)
  Receive Date: 20190924
  Receipt Date: 20190924
  Transmission Date: 20191005
  Serious: Yes (Life-Threatening, Hospitalization, Other)
  Sender: FDA-Public Use
  Company Number: AT-ACCORD-155724

PATIENT
  Age: 5 Year
  Sex: Female

DRUGS (7)
  1. CALCIUM GLUCONATE. [Suspect]
     Active Substance: CALCIUM GLUCONATE
     Indication: HYPERKALAEMIA
     Route: 042
  2. SALBUTAMOL [Suspect]
     Active Substance: ALBUTEROL
     Indication: HYPERKALAEMIA
     Route: 042
  3. GLUCOSE [Suspect]
     Active Substance: DEXTROSE
     Indication: HYPERKALAEMIA
     Route: 042
  4. INSULIN [Suspect]
     Active Substance: INSULIN NOS
     Indication: HYPERKALAEMIA
     Route: 042
  5. RITUXIMAB. [Suspect]
     Active Substance: RITUXIMAB
     Indication: BURKITT^S LYMPHOMA
     Route: 065
  6. SODIUM BICARBONATE. [Suspect]
     Active Substance: SODIUM BICARBONATE
     Indication: HYPERKALAEMIA
     Route: 042
  7. FUROSEMIDE. [Suspect]
     Active Substance: FUROSEMIDE
     Indication: HYPERKALAEMIA
     Route: 042

REACTIONS (6)
  - Tumour lysis syndrome [Unknown]
  - Drug ineffective [Unknown]
  - Cardiac arrest [Recovered/Resolved]
  - Ventricular fibrillation [Recovered/Resolved]
  - Hyperkalaemia [Recovered/Resolved]
  - Acute respiratory failure [Unknown]
